FAERS Safety Report 6440471-2 (Version None)
Quarter: 2009Q4

REPORT INFORMATION
  Report Type: 
  Country: None (occurrence: None)
  Receive Date: 20091112
  Receipt Date: 20091112
  Transmission Date: 20100525
  Serious: No
  Sender: FDA-Public Use
  Company Number: None

PATIENT
  Age: 52 Year
  Sex: Female
  Weight: 70.3075 kg

DRUGS (2)
  1. LEVAQUIN [Suspect]
     Indication: BRONCHITIS
     Dosage: 1 ONCE A DAY PO
     Route: 048
     Dates: start: 20091102, end: 20091104
  2. LEVAQUIN [Suspect]
     Indication: SINUSITIS
     Dosage: 1 ONCE A DAY PO
     Route: 048
     Dates: start: 20091102, end: 20091104

REACTIONS (3)
  - DIZZINESS [None]
  - INSOMNIA [None]
  - NAUSEA [None]
